FAERS Safety Report 19599895 (Version 1)
Quarter: 2021Q3

REPORT INFORMATION
  Report Type: Report from Study
  Country: US (occurrence: US)
  Receive Date: 20210722
  Receipt Date: 20210722
  Transmission Date: 20211014
  Serious: No
  Sender: FDA-Public Use
  Company Number: NVSC2021US158005

PATIENT
  Sex: Male

DRUGS (1)
  1. ENTRESTO [Suspect]
     Active Substance: SACUBITRIL\VALSARTAN
     Indication: CARDIAC FAILURE
     Dosage: 1 DF, BID(49/51 MG)
     Route: 048

REACTIONS (5)
  - Sleep disorder [Unknown]
  - Cough [Unknown]
  - Renal disorder [Unknown]
  - Blood potassium abnormal [Unknown]
  - Nasopharyngitis [Unknown]
